FAERS Safety Report 7467004-6 (Version None)
Quarter: 2011Q2

REPORT INFORMATION
  Report Type: 
  Country: None (occurrence: None)
  Receive Date: 20110509
  Receipt Date: 20110503
  Transmission Date: 20111010
  Serious: Yes (Other)
  Sender: FDA-Public Use
  Company Number: US-PFIZER INC-2011038628

PATIENT
  Sex: Male
  Weight: 117.91 kg

DRUGS (8)
  1. INSULIN GLULISINE [Concomitant]
     Indication: DIABETES MELLITUS
     Dosage: UNK
  2. LISINOPRIL [Concomitant]
     Indication: HYPERTENSION
     Dosage: UNK
  3. METFORMIN [Concomitant]
     Indication: DIABETES MELLITUS
     Dosage: UNK
  4. CRESTOR [Concomitant]
     Indication: BLOOD CHOLESTEROL INCREASED
     Dosage: UNK
  5. DECADRON [Concomitant]
     Indication: BRAIN STEM SYNDROME
     Dosage: UNK
  6. CITALOPRAM [Concomitant]
     Dosage: UNK
  7. LANTUS [Concomitant]
     Indication: DIABETES MELLITUS
     Dosage: UNK
  8. SUTENT [Suspect]
     Indication: METASTATIC RENAL CELL CARCINOMA
     Dosage: 50 MG, DAILY, FOR 28 DAYS EVERY 42 DAYS
     Route: 048
     Dates: start: 20110128

REACTIONS (1)
  - HYPOTENSION [None]
